FAERS Safety Report 9632436 (Version 1)
Quarter: 2013Q4

REPORT INFORMATION
  Report Type: Spontaneous
  Country: US (occurrence: US)
  Receive Date: 20131018
  Receipt Date: 20131018
  Transmission Date: 20140711
  Serious: Yes (Other)
  Sender: FDA-Public Use
  Company Number: US-PFIZER INC-2013296528

PATIENT
  Sex: Female

DRUGS (1)
  1. NEURONTIN [Suspect]
     Dosage: UNK
     Dates: end: 2013

REACTIONS (8)
  - Femur fracture [Unknown]
  - Foot fracture [Unknown]
  - Drug ineffective [Unknown]
  - Burning sensation [Unknown]
  - Neuralgia [Unknown]
  - Dizziness [Unknown]
  - Nervous system disorder [Unknown]
  - Fall [Unknown]
